FAERS Safety Report 4677908-5 (Version None)
Quarter: 2005Q2

REPORT INFORMATION
  Report Type: 
  Country: None (occurrence: None)
  Receive Date: 20050531
  Receipt Date: 20050523
  Transmission Date: 20051028
  Serious: Yes (Other)
  Sender: FDA-Public Use
  Company Number: LB-GLAXOSMITHKLINE-B0382708A

PATIENT
  Age: 35 Year
  Sex: Female

DRUGS (1)
  1. AUGMENTIN '125' [Suspect]
     Indication: TOOTH INFECTION
     Dosage: 1G TWICE PER DAY
     Route: 048
     Dates: start: 20050509, end: 20050516

REACTIONS (1)
  - VAGINAL MYCOSIS [None]
